FAERS Safety Report 13547257 (Version 10)
Quarter: 2019Q1

REPORT INFORMATION
  Report Type: Report from Study
  Country: US (occurrence: US)
  Receive Date: 20170515
  Receipt Date: 20190129
  Transmission Date: 20190417
  Serious: Yes (Hospitalization)
  Sender: FDA-Public Use
  Company Number: US-ACTELION-A-NJ2017-153765

PATIENT
  Age: 66 Year
  Sex: Female
  Weight: 57.6 kg

DRUGS (4)
  1. TRACLEER [Suspect]
     Active Substance: BOSENTAN
     Indication: PULMONARY ARTERIAL HYPERTENSION
     Dosage: 125 MG, BID
     Route: 048
  2. SILDENAFIL CITRATE. [Concomitant]
     Active Substance: SILDENAFIL CITRATE
  3. REMODULIN [Suspect]
     Active Substance: TREPROSTINIL
     Indication: PRODUCT USED FOR UNKNOWN INDICATION
     Route: 058
  4. DILTIAZEM. [Concomitant]
     Active Substance: DILTIAZEM

REACTIONS (11)
  - Pulmonary oedema [Unknown]
  - Infusion site swelling [Unknown]
  - Peripheral swelling [Unknown]
  - Infusion site rash [Unknown]
  - Rash [Unknown]
  - Infusion site irritation [Not Recovered/Not Resolved]
  - Infusion site pain [Unknown]
  - Pulmonary hypertension [Unknown]
  - Infusion site inflammation [Unknown]
  - Infusion site erythema [Unknown]
  - Cardiac failure [Unknown]
